FAERS Safety Report 23551860 (Version 2)
Quarter: 2024Q1

REPORT INFORMATION
  Report Type: Spontaneous
  Country: IT (occurrence: IT)
  Receive Date: 20240222
  Receipt Date: 20240307
  Transmission Date: 20240410
  Serious: Yes (Other)
  Sender: FDA-Public Use
  Company Number: IT-TEVA-VS-3159848

PATIENT
  Age: 61 Year
  Sex: Female

DRUGS (5)
  1. LETROZOLE [Suspect]
     Active Substance: LETROZOLE
     Indication: Breast cancer
     Route: 065
  2. VINORELBINE [Suspect]
     Active Substance: VINORELBINE TARTRATE
     Indication: Breast cancer
     Dosage: TIME INTERVAL: 0.33333333 WEEKS: THREE DAYS PER WEEK
     Route: 048
  3. EXEMESTANE [Concomitant]
     Active Substance: EXEMESTANE
     Indication: Breast cancer
     Route: 065
  4. EVEROLIMUS [Concomitant]
     Active Substance: EVEROLIMUS
     Indication: Breast cancer
     Route: 065
  5. PALBOCICLIB [Suspect]
     Active Substance: PALBOCICLIB
     Indication: Breast cancer
     Route: 065

REACTIONS (2)
  - Haematotoxicity [Unknown]
  - Drug ineffective [Unknown]
